FAERS Safety Report 5341329-2 (Version None)
Quarter: 2007Q2

REPORT INFORMATION
  Report Type: 
  Country: None (occurrence: None)
  Receive Date: 20070524
  Receipt Date: 20070508
  Transmission Date: 20071010
  Serious: Yes (Life-Threatening, Hospitalization)
  Sender: FDA-Public Use
  Company Number: AEDEU200700117

PATIENT
  Age: 78 Year
  Sex: Female

DRUGS (1)
  1. IMMUNE GLOBULIN INTRAVENOUS (HUMAN) [Suspect]
     Indication: CHRONIC INFLAMMATORY DEMYELINATING POLYRADICULONEUROPATHY
     Dosage: 0.4 G/KG/QD

REACTIONS (12)
  - AUTONOMIC NERVOUS SYSTEM IMBALANCE [None]
  - BLOOD PRESSURE ABNORMAL [None]
  - CARDIAC ARREST [None]
  - DYSARTHRIA [None]
  - DYSPHONIA [None]
  - GUILLAIN-BARRE SYNDROME [None]
  - MULTI-ORGAN FAILURE [None]
  - MUSCULAR WEAKNESS [None]
  - PARALYSIS [None]
  - PNEUMONIA [None]
  - SEPSIS [None]
  - SUDDEN CARDIAC DEATH [None]
